FAERS Safety Report 22165825 (Version 1)
Quarter: 2023Q2

REPORT INFORMATION
  Report Type: Spontaneous
  Country: FR (occurrence: FR)
  Receive Date: 20230403
  Receipt Date: 20230403
  Transmission Date: 20230721
  Serious: Yes (Other)
  Sender: FDA-Public Use
  Company Number: FR-ADVANZ PHARMA-202303002071

PATIENT
  Age: 60 Year
  Sex: Male

DRUGS (2)
  1. ALPROSTADIL [Suspect]
     Active Substance: ALPROSTADIL
     Dosage: UNK, EASYPEN
     Dates: start: 202211
  2. ALPROSTADIL [Suspect]
     Active Substance: ALPROSTADIL
     Dosage: UNK

REACTIONS (2)
  - Injection site pain [Not Recovered/Not Resolved]
  - Device mechanical issue [Unknown]

NARRATIVE: CASE EVENT DATE: 20221101
